FAERS Safety Report 18673233 (Version 2)
Quarter: 2021Q1

REPORT INFORMATION
  Report Type: Spontaneous
  Country: US (occurrence: US)
  Receive Date: 20201229
  Receipt Date: 20210122
  Transmission Date: 20210419
  Serious: No
  Sender: FDA-Public Use
  Company Number: US-SA-2020SA365291

PATIENT
  Age: 81 Year
  Sex: Female

DRUGS (2)
  1. DUPIXENT [Suspect]
     Active Substance: DUPILUMAB
     Indication: DERMATITIS ATOPIC
     Dosage: 300 MG, QOW
     Route: 058
     Dates: start: 20201201
  2. DOXYCYCLINE. [Suspect]
     Active Substance: DOXYCYCLINE
     Indication: SKIN DISORDER
     Dosage: UNK
     Dates: end: 20210107

REACTIONS (5)
  - Hypertension [Recovered/Resolved]
  - Peripheral coldness [Unknown]
  - Somnolence [Recovered/Resolved]
  - Therapeutic response unexpected [Unknown]
  - Headache [Unknown]

NARRATIVE: CASE EVENT DATE: 202012
